FAERS Safety Report 7246395-5 (Version None)
Quarter: 2011Q1

REPORT INFORMATION
  Report Type: 
  Country: None (occurrence: None)
  Receive Date: 20110126
  Receipt Date: 20091217
  Transmission Date: 20110831
  Serious: No
  Sender: FDA-Public Use
  Company Number: US-BAUSCH-2009BL006654

PATIENT
  Age: 76 Year
  Sex: Female

DRUGS (2)
  1. ZYLET [Suspect]
     Indication: BLEPHARITIS
     Route: 047
     Dates: start: 20091216, end: 20091216
  2. ZYLET [Suspect]
     Indication: CONJUNCTIVITIS
     Route: 047
     Dates: start: 20091216, end: 20091216

REACTIONS (5)
  - VISION BLURRED [None]
  - EYE PAIN [None]
  - EYE IRRITATION [None]
  - HEADACHE [None]
  - EYE PRURITUS [None]
